FAERS Safety Report 20508146 (Version 5)
Quarter: 2022Q3

REPORT INFORMATION
  Report Type: Spontaneous
  Country: AR (occurrence: AR)
  Receive Date: 20220223
  Receipt Date: 20220804
  Transmission Date: 20221027
  Serious: Yes (Other)
  Sender: FDA-Public Use
  Company Number: AR-GLAXOSMITHKLINE-AR2022AMR031353

PATIENT

DRUGS (1)
  1. NUCALA [Suspect]
     Active Substance: MEPOLIZUMAB
     Indication: Asthma
     Dosage: 100 MG/ML, VIAL
     Route: 058
     Dates: start: 20191001

REACTIONS (5)
  - Breast cancer [Not Recovered/Not Resolved]
  - Intraocular lens implant [Recovered/Resolved]
  - COVID-19 [Not Recovered/Not Resolved]
  - Intercepted medication error [Unknown]
  - Product complaint [Unknown]

NARRATIVE: CASE EVENT DATE: 20220311
